FAERS Safety Report 9190790 (Version 1)
Quarter: 2013Q1

REPORT INFORMATION
  Report Type: Spontaneous
  Country: US (occurrence: None)
  Receive Date: 20120703
  Receipt Date: 20120703
  Transmission Date: 20140127
  Serious: No
  Sender: FDA-Public Use
  Company Number: PHEH2012US008022

PATIENT
  Age: 45 Year
  Sex: Male

DRUGS (1)
  1. GILENYA (FTY) CAPSULE [Suspect]
     Dosage: OT, ORAL
     Route: 048

REACTIONS (2)
  - Fatigue [None]
  - Pain [None]
